FAERS Safety Report 4551102-0 (Version None)
Quarter: 2005Q1

REPORT INFORMATION
  Report Type: 
  Country: None (occurrence: None)
  Receive Date: 20050113
  Receipt Date: 20050103
  Transmission Date: 20050727
  Serious: Yes (Hospitalization)
  Sender: FDA-Public Use
  Company Number: PHRM2005FR00443

PATIENT
  Age: 49 Year
  Sex: Female
  Weight: 71 kg

DRUGS (1)
  1. VOLTAREN [Suspect]
     Dosage: 25 MG, ONCE/SINGLE
     Route: 048
     Dates: start: 20040615, end: 20040615

REACTIONS (4)
  - ANGIONEUROTIC OEDEMA [None]
  - COUGH [None]
  - DYSPNOEA [None]
  - RASH MACULO-PAPULAR [None]
